FAERS Safety Report 10179113 (Version 1)
Quarter: 2014Q2

REPORT INFORMATION
  Report Type: Spontaneous
  Country: US (occurrence: None)
  Receive Date: 20140516
  Receipt Date: 20140516
  Transmission Date: 20141212
  Serious: Yes (Life-Threatening)
  Sender: FDA-Public Use
  Company Number: None

PATIENT
  Sex: Male
  Weight: 2.3 kg

DRUGS (1)
  1. PORACTANT ALFA [Suspect]
     Indication: RESPIRATORY DISTRESS
     Dosage: ONE TIME ETT
     Route: 007

REACTIONS (2)
  - Cardio-respiratory arrest [None]
  - Endotracheal intubation complication [None]
